FAERS Safety Report 14708010 (Version 2)
Quarter: 2018Q2

REPORT INFORMATION
  Report Type: Spontaneous
  Country: US (occurrence: US)
  Receive Date: 20180403
  Receipt Date: 20180426
  Transmission Date: 20180711
  Serious: No
  Sender: FDA-Public Use
  Company Number: US-PFIZER INC-2018133949

PATIENT
  Age: 60 Year
  Sex: Male
  Weight: 83.91 kg

DRUGS (4)
  1. CARBIDOPA/LEVODOPA [Concomitant]
     Indication: PARKINSONISM
     Dosage: UNK
     Dates: start: 2015
  2. VFEND [Suspect]
     Active Substance: VORICONAZOLE
     Indication: FUNGAL INFECTION
     Dosage: UNK, 1X/DAY (ONCE IN THE MORNING)
     Route: 048
     Dates: start: 201802
  3. VFEND [Suspect]
     Active Substance: VORICONAZOLE
     Indication: BONE MARROW TRANSPLANT
     Dosage: 200 MG, 2X/DAY
     Dates: start: 20180219, end: 201804
  4. AMANTADINE. [Concomitant]
     Active Substance: AMANTADINE HYDROCHLORIDE
     Indication: PARKINSONISM
     Dosage: UNK
     Dates: start: 2015

REACTIONS (5)
  - Feeling abnormal [Recovered/Resolved]
  - Fatigue [Recovered/Resolved]
  - Product use issue [Unknown]
  - Hallucination, visual [Recovered/Resolved]
  - Memory impairment [Recovered/Resolved]

NARRATIVE: CASE EVENT DATE: 201802
